FAERS Safety Report 25665502 (Version 1)
Quarter: 2025Q3

REPORT INFORMATION
  Report Type: Spontaneous
  Country: US (occurrence: None)
  Receive Date: 20250810
  Receipt Date: 20250810
  Transmission Date: 20251021
  Serious: Yes (Other)
  Sender: FDA-CTU
  Company Number: None

PATIENT
  Age: 11 Year
  Sex: Male
  Weight: 45 kg

DRUGS (1)
  1. CHILDRENS TYLENOL [Suspect]
     Active Substance: ACETAMINOPHEN
     Indication: Pain
     Dosage: OTHER QUANTITY : 3 TABLESPOON(S);?FREQUENCY : EVERY 4 HOURS;?
     Route: 048
     Dates: start: 20250806, end: 20250807

REACTIONS (2)
  - Drug hypersensitivity [None]
  - Physical product label issue [None]

NARRATIVE: CASE EVENT DATE: 20250807
